FAERS Safety Report 4479011-6 (Version None)
Quarter: 2004Q4

REPORT INFORMATION
  Report Type: 
  Country: None (occurrence: None)
  Receive Date: 20041019
  Receipt Date: 20040922
  Transmission Date: 20050328
  Serious: Yes (Hospitalization, Disabling, Other)
  Sender: FDA-Public Use
  Company Number: US-MERCK-0409USA01912

PATIENT
  Age: 54 Year
  Sex: Male
  Weight: 70 kg

DRUGS (6)
  1. ZETIA [Suspect]
     Indication: BLOOD CHOLESTEROL INCREASED
     Route: 048
     Dates: start: 20040208, end: 20040706
  2. ZESTRIL [Concomitant]
     Indication: HYPERTENSION
     Route: 065
     Dates: start: 20001205, end: 20040601
  3. HYDRODIURIL [Concomitant]
     Indication: HYPERTENSION
     Route: 065
     Dates: start: 19990101, end: 20040618
  4. LIPITOR [Concomitant]
     Indication: LIPIDS INCREASED
     Route: 065
     Dates: start: 20040218, end: 20040602
  5. LOPID [Concomitant]
     Indication: LIPIDS INCREASED
     Route: 065
     Dates: start: 20040217, end: 20040723
  6. SYNTHROID [Concomitant]
     Route: 065
     Dates: start: 20040717, end: 20040723

REACTIONS (3)
  - ASCITES [None]
  - HEPATIC FAILURE [None]
  - HEPATITIS CHOLESTATIC [None]
